FAERS Safety Report 21349300 (Version 2)
Quarter: 2022Q3

REPORT INFORMATION
  Report Type: Spontaneous
  Country: US (occurrence: US)
  Receive Date: 20220919
  Receipt Date: 20220928
  Transmission Date: 20221027
  Serious: Yes (Death, Hospitalization, Other)
  Sender: FDA-Public Use
  Company Number: US-PFIZER INC-202201164158

PATIENT
  Age: 79 Year
  Sex: Male
  Weight: 77.11 kg

DRUGS (2)
  1. VYNDAQEL [Suspect]
     Active Substance: TAFAMIDIS MEGLUMINE
     Indication: Cardiac amyloidosis
     Dosage: 4 DF, DAILY
     Dates: start: 201906
  2. VYNDAMAX [Suspect]
     Active Substance: TAFAMIDIS
     Indication: Cardiac amyloidosis
     Dosage: 61 MG, 1X/DAY
     Route: 048
     Dates: start: 20220101, end: 20220912

REACTIONS (11)
  - Abdominal infection [Fatal]
  - Hepatic failure [Fatal]
  - Renal failure [Fatal]
  - Abdominal pain [Unknown]
  - Urinary retention [Unknown]
  - Incarcerated inguinal hernia [Unknown]
  - Ascites [Unknown]
  - Blood potassium abnormal [Unknown]
  - Skin disorder [Unknown]
  - Therapeutic response unexpected [Unknown]
  - Wrong strength [Unknown]

NARRATIVE: CASE EVENT DATE: 20200101
